FAERS Safety Report 7563556-6 (Version None)
Quarter: 2011Q2

REPORT INFORMATION
  Report Type: 
  Country: None (occurrence: None)
  Receive Date: 20110615
  Receipt Date: 20110603
  Transmission Date: 20111010
  Serious: Yes (Death)
  Sender: FDA-Public Use
  Company Number: 1000021538

PATIENT
  Age: 48 Year
  Sex: Male

DRUGS (4)
  1. LEXAPRO [Suspect]
     Indication: MAJOR DEPRESSION
     Dosage: 1 DF (1 DOSAGE FORMS, 1 IN 1 D)
     Dates: start: 20100510, end: 20100519
  2. PANADEINE FORTE (PARACETAMOL, CODEINE) [Suspect]
  3. ZOLPIDEM TARTRATE [Suspect]
     Dosage: 10 MG (10 MG, 1 IN 1 D)
     Dates: end: 20100519
  4. NUROFEN PLUS (IBUPROFEN, CODEINE) [Suspect]

REACTIONS (8)
  - BIPOLAR DISORDER [None]
  - HALLUCINATION, AUDITORY [None]
  - ABNORMAL BEHAVIOUR [None]
  - PSYCHOTIC DISORDER [None]
  - ABNORMAL SLEEP-RELATED EVENT [None]
  - SOMNAMBULISM [None]
  - DROWNING [None]
  - DEPRESSION [None]
